FAERS Safety Report 4710929-2 (Version None)
Quarter: 2005Q3

REPORT INFORMATION
  Report Type: 
  Country: None (occurrence: None)
  Receive Date: 20050706
  Receipt Date: 20050706
  Transmission Date: 20060218
  Serious: No
  Sender: FDA-Public Use
  Company Number: None

PATIENT
  Age: 39 Year
  Sex: Male
  Weight: 68.0396 kg

DRUGS (2)
  1. ACYCLOVIR [Suspect]
     Indication: HERPES SIMPLEX
     Dosage: 200 MG 5X Q D PO
     Route: 048
     Dates: start: 20050607, end: 20050610
  2. ABREVA [Concomitant]

REACTIONS (3)
  - ERYTHEMA MULTIFORME [None]
  - MUCOSAL INFLAMMATION [None]
  - VASCULITIS [None]
